FAERS Safety Report 6173408-4 (Version None)
Quarter: 2009Q2

REPORT INFORMATION
  Report Type: 
  Country: None (occurrence: None)
  Receive Date: 20090430
  Receipt Date: 20090422
  Transmission Date: 20091009
  Serious: Yes (Other)
  Sender: FDA-Public Use
  Company Number: US-WATSON-2009-02868

PATIENT

DRUGS (3)
  1. LEVORA 0.15/30-28 (WATSON LABORATORIES) [Suspect]
     Indication: MENSTRUATION IRREGULAR
     Dosage: 0.15/30, DAILY
     Route: 048
     Dates: start: 20090212, end: 20090303
  2. PF-02413873; PLACEBO (CODE NOT BROKEN) UNKNOWN [Suspect]
     Indication: DRUG USE FOR UNKNOWN INDICATION
     Dosage: NO DOSE GIVEN
     Route: 065
  3. ORA THIN [Concomitant]
     Indication: SUPPLEMENTATION THERAPY
     Dosage: UNK
     Route: 048
     Dates: end: 20090302

REACTIONS (4)
  - ABORTION SPONTANEOUS [None]
  - ANAEMIA [None]
  - BLOOD HUMAN CHORIONIC GONADOTROPIN POSITIVE [None]
  - VAGINAL HAEMORRHAGE [None]
